FAERS Safety Report 7643843-3 (Version None)
Quarter: 2011Q3

REPORT INFORMATION
  Report Type: 
  Country: None (occurrence: None)
  Receive Date: 20110729
  Receipt Date: 20100713
  Transmission Date: 20111222
  Serious: Yes (Disabling, Other)
  Sender: FDA-Public Use
  Company Number: US-GLAXOSMITHKLINE-A0871479A

PATIENT
  Sex: Female

DRUGS (1)
  1. IMITREX [Suspect]
     Indication: MIGRAINE
     Route: 048
     Dates: start: 20050101

REACTIONS (4)
  - ABDOMINAL DISCOMFORT [None]
  - NAUSEA [None]
  - DECREASED APPETITE [None]
  - DRY MOUTH [None]
